FAERS Safety Report 17302847 (Version 2)
Quarter: 2020Q1

REPORT INFORMATION
  Report Type: Spontaneous
  Country: US (occurrence: US)
  Receive Date: 20200122
  Receipt Date: 20200324
  Transmission Date: 20200409
  Serious: Yes (Death, Other)
  Sender: FDA-Public Use
  Company Number: US-ENDO PHARMACEUTICALS INC-2019-109422

PATIENT
  Sex: Female

DRUGS (29)
  1. ALBUTEROL                          /00139501/ [Concomitant]
     Active Substance: ALBUTEROL
     Indication: CHRONIC OBSTRUCTIVE PULMONARY DISEASE
     Dosage: 3 ML, QID
     Route: 065
  2. SEROQUEL [Concomitant]
     Active Substance: QUETIAPINE FUMARATE
     Dosage: 200 MG, Q AM PRN
     Route: 048
  3. NORCO [Suspect]
     Active Substance: ACETAMINOPHEN\HYDROCODONE BITARTRATE
     Indication: MUSCULOSKELETAL PAIN
     Dosage: 1 DF, TID TO QID
     Route: 048
  4. LITHIUM. [Concomitant]
     Active Substance: LITHIUM
     Indication: BIPOLAR DISORDER
     Dosage: 1 DF, TID
     Route: 048
  5. PERCOCET [Suspect]
     Active Substance: ACETAMINOPHEN\OXYCODONE HYDROCHLORIDE
     Indication: PAIN IN JAW
     Dosage: UNK UNKNOWN, UNKNOWN
     Route: 065
     Dates: start: 2012
  6. DEPO-PROVERA [Concomitant]
     Active Substance: MEDROXYPROGESTERONE ACETATE
     Indication: CONTRACEPTION
     Dosage: 150 MG, EVERY 3 MONTHS
     Route: 030
  7. LYRICA [Concomitant]
     Active Substance: PREGABALIN
     Indication: SPINAL PAIN
  8. SEROQUEL [Concomitant]
     Active Substance: QUETIAPINE FUMARATE
     Indication: BIPOLAR I DISORDER
     Dosage: 100 MG, QHS
     Route: 048
     Dates: start: 20140924
  9. PERCOCET [Suspect]
     Active Substance: ACETAMINOPHEN\OXYCODONE HYDROCHLORIDE
     Indication: MUSCLE STRAIN
     Dosage: 1 DF (5/325 MG), QID
     Route: 048
     Dates: start: 20110915
  10. PERCOCET [Suspect]
     Active Substance: ACETAMINOPHEN\OXYCODONE HYDROCHLORIDE
     Indication: SPINAL PAIN
     Dosage: 1 DF(10/325 MG), TID
     Route: 048
     Dates: start: 20130820, end: 20150409
  11. PERCOCET [Suspect]
     Active Substance: ACETAMINOPHEN\OXYCODONE HYDROCHLORIDE
     Dosage: 1 DF (10/325MG), QID
     Route: 048
     Dates: start: 20150409
  12. PHENERGAN [Concomitant]
     Active Substance: PROMETHAZINE HYDROCHLORIDE
     Indication: NAUSEA
     Dosage: 1 DF, TID PRN
     Route: 048
  13. PHENERGAN [Concomitant]
     Active Substance: PROMETHAZINE HYDROCHLORIDE
     Indication: VOMITING
  14. XANAX [Concomitant]
     Active Substance: ALPRAZOLAM
     Dosage: 1 DF, QHS
     Route: 048
     Dates: start: 20140829
  15. NICODERM CQ [Concomitant]
     Active Substance: NICOTINE
     Indication: TOBACCO ABUSE
     Dosage: 7MG/24HR, DAILY
     Route: 062
     Dates: start: 20150212
  16. COMBIVENT [Concomitant]
     Active Substance: ALBUTEROL SULFATE\IPRATROPIUM BROMIDE
     Indication: CHRONIC OBSTRUCTIVE PULMONARY DISEASE
     Dosage: 2 PUFFS QID
     Route: 065
  17. RISPERDAL [Concomitant]
     Active Substance: RISPERIDONE
     Indication: BIPOLAR I DISORDER
     Dosage: 1 DF, QHS
     Route: 048
     Dates: start: 20140829, end: 20140924
  18. PERCOCET [Suspect]
     Active Substance: ACETAMINOPHEN\OXYCODONE HYDROCHLORIDE
     Indication: MUSCULOSKELETAL PAIN
     Dosage: 1 DF (10/325MG), EVERY 6 HOURS
     Route: 048
     Dates: start: 20121010
  19. LYRICA [Concomitant]
     Active Substance: PREGABALIN
     Indication: SEIZURE
     Dosage: 1 DF, TID
     Route: 065
  20. XANAX [Concomitant]
     Active Substance: ALPRAZOLAM
     Indication: GENERALISED ANXIETY DISORDER
     Dosage: 0.5 MG, TID
     Route: 065
  21. SEROQUEL [Concomitant]
     Active Substance: QUETIAPINE FUMARATE
     Indication: BIPOLAR I DISORDER
     Dosage: 200 MG, QHS
     Route: 048
     Dates: end: 20140829
  22. SEROQUEL [Concomitant]
     Active Substance: QUETIAPINE FUMARATE
     Dosage: 50 MG, DAILY IN THE AM
     Route: 048
     Dates: start: 20140924
  23. PROMETHAZINE HYDROCHLORIDE. [Concomitant]
     Active Substance: PROMETHAZINE HYDROCHLORIDE
     Indication: NAUSEA
     Dosage: 1 DF, QID
     Route: 048
  24. VORICONAZOLE. [Concomitant]
     Active Substance: VORICONAZOLE
     Indication: ASPERGILLUS INFECTION
     Dosage: 1.5 DF, BID, EVERY 12 HR
     Route: 048
  25. KEPPRA [Concomitant]
     Active Substance: LEVETIRACETAM
     Indication: SEIZURE
     Dosage: 2 DF, BID
     Route: 048
  26. LAMICTAL [Concomitant]
     Active Substance: LAMOTRIGINE
     Indication: SEIZURE
     Dosage: 1 DF, DAILY
     Route: 048
  27. AMBIEN [Concomitant]
     Active Substance: ZOLPIDEM TARTRATE
     Indication: INSOMNIA
     Dosage: 1 DF, QHS
     Route: 048
  28. NICODERM CQ [Concomitant]
     Active Substance: NICOTINE
     Dosage: 14MG/24HR DAILY
     Route: 062
     Dates: start: 20150212
  29. QUETIAPINE FUMARATE. [Concomitant]
     Active Substance: QUETIAPINE FUMARATE
     Indication: BIPOLAR I DISORDER
     Dosage: 1 DF, QHS
     Route: 048

REACTIONS (7)
  - Pain [Unknown]
  - Drug ineffective [Unknown]
  - Drug abuse [Unknown]
  - Unevaluable event [Unknown]
  - Death [Fatal]
  - Dependence [Unknown]
  - Intentional product misuse [Unknown]

NARRATIVE: CASE EVENT DATE: 2012
